FAERS Safety Report 8149293-8 (Version None)
Quarter: 2012Q1

REPORT INFORMATION
  Report Type: 
  Country: None (occurrence: None)
  Receive Date: 20120218
  Receipt Date: 20110920
  Transmission Date: 20120608
  Serious: No
  Sender: FDA-Public Use
  Company Number: US-ALLERGAN-1112486US

PATIENT
  Age: 58 Year
  Sex: Female

DRUGS (2)
  1. BOTOX COSMETIC [Suspect]
     Indication: SKIN WRINKLING
     Dosage: 61.5 UNITS, SINGLE
     Route: 030
     Dates: start: 20110915, end: 20110915
  2. JUVEDERM [Suspect]
     Indication: SKIN WRINKLING
     Dosage: 8 ML, SINGLE
     Route: 030
     Dates: start: 20110915

REACTIONS (7)
  - ERYTHEMA [None]
  - SWELLING FACE [None]
  - SKIN TIGHTNESS [None]
  - SKIN INDURATION [None]
  - CONTUSION [None]
  - PRURITUS [None]
  - SCAB [None]
